FAERS Safety Report 13933083 (Version 1)
Quarter: 2017Q3

REPORT INFORMATION
  Report Type: Report from Study
  Country: IE (occurrence: IE)
  Receive Date: 20170904
  Receipt Date: 20170904
  Transmission Date: 20171127
  Serious: Yes (Other)
  Sender: FDA-Public Use
  Company Number: IE-JNJFOC-20170900324

PATIENT
  Age: 30 Year
  Sex: Female

DRUGS (5)
  1. STELARA [Suspect]
     Active Substance: USTEKINUMAB
     Indication: INFLAMMATORY BOWEL DISEASE
     Route: 058
     Dates: start: 20170316
  2. CYMBALTA [Concomitant]
     Active Substance: DULOXETINE HYDROCHLORIDE
     Route: 065
  3. BUSCOPAN [Concomitant]
     Active Substance: BUTYLSCOPOLAMINE BROMIDE
     Dosage: PRN (AS REQUIRED
     Route: 065
  4. OMEPRAZOLE. [Concomitant]
     Active Substance: OMEPRAZOLE
     Route: 065
  5. ASACOL [Concomitant]
     Active Substance: MESALAMINE
     Route: 065

REACTIONS (3)
  - Respiratory tract infection [Recovered/Resolved]
  - Product use in unapproved indication [Unknown]
  - Off label use [Unknown]

NARRATIVE: CASE EVENT DATE: 2017
